FAERS Safety Report 15948543 (Version 2)
Quarter: 2019Q1

REPORT INFORMATION
  Report Type: Report from Study
  Country: ES (occurrence: ES)
  Receive Date: 20190212
  Receipt Date: 20190216
  Transmission Date: 20190417
  Serious: Yes (Hospitalization)
  Sender: FDA-Public Use
  Company Number: ES-ACCORD-106418

PATIENT
  Age: 50 Year
  Sex: Female

DRUGS (7)
  1. LYRICA [Concomitant]
     Active Substance: PREGABALIN
     Dosage: 1-0-1
     Route: 048
     Dates: start: 20161209
  2. QUETIAPINE. [Suspect]
     Active Substance: QUETIAPINE
     Dosage: 25MG, 69 COMP
     Route: 048
     Dates: start: 20170919, end: 20170919
  3. LORMETAZEPAM [Suspect]
     Active Substance: LORMETAZEPAM
     Dosage: 25 TABLET OF 2 MG
     Dates: start: 20170919, end: 20170919
  4. AGOMELATINE [Concomitant]
     Active Substance: AGOMELATINE
     Dosage: 25MG 0-0-1
     Route: 048
  5. LORAZEPAM. [Suspect]
     Active Substance: LORAZEPAM
     Dosage: 25 CPS 1 MG
     Route: 048
     Dates: start: 20170919, end: 20170919
  6. HYDROCHLOROTHIAZIDE/LISINOPRIL [Concomitant]
     Indication: HYPERTENSION
     Dosage: 1-0-0
     Route: 048
     Dates: start: 20070101
  7. VENLAFAXINE/VENLAFAXINE HYDROCHLORIDE [Concomitant]
     Route: 048
     Dates: start: 20161209

REACTIONS (3)
  - Hepatitis [Recovered/Resolved]
  - Depressed level of consciousness [Recovered/Resolved]
  - Suicide attempt [Unknown]

NARRATIVE: CASE EVENT DATE: 20170919
